FAERS Safety Report 11917681 (Version 1)
Quarter: 2016Q1

REPORT INFORMATION
  Report Type: Spontaneous
  Country: US (occurrence: US)
  Receive Date: 20160114
  Receipt Date: 20160114
  Transmission Date: 20160526
  Serious: Yes (Hospitalization, Other)
  Sender: FDA-Public Use
  Company Number: US-ABBVIE-16P-163-1534261-00

PATIENT
  Sex: Male
  Weight: 83.99 kg

DRUGS (2)
  1. ANDROGEL [Suspect]
     Active Substance: TESTOSTERONE
     Route: 061
     Dates: start: 2013
  2. ANDROGEL [Suspect]
     Active Substance: TESTOSTERONE
     Indication: BLOOD TESTOSTERONE DECREASED
     Route: 061
     Dates: start: 2010, end: 2012

REACTIONS (5)
  - Prostate cancer [Recovered/Resolved]
  - Alopecia [Not Recovered/Not Resolved]
  - Cellulitis [Recovered/Resolved]
  - Prostatic specific antigen increased [Recovered/Resolved]
  - Drug administered at inappropriate site [Not Recovered/Not Resolved]

NARRATIVE: CASE EVENT DATE: 2012
